FAERS Safety Report 12450578 (Version 1)
Quarter: 2016Q2

REPORT INFORMATION
  Report Type: Spontaneous
  Country: TW (occurrence: TW)
  Receive Date: 20160609
  Receipt Date: 20160609
  Transmission Date: 20160815
  Serious: Yes (Death)
  Sender: FDA-Public Use
  Company Number: TW-CELGENEUS-TWN-2016056200

PATIENT
  Sex: Female

DRUGS (1)
  1. REVLIMID [Suspect]
     Active Substance: LENALIDOMIDE
     Indication: PLASMA CELL MYELOMA
     Dosage: 15 MILLIGRAM
     Route: 048
     Dates: start: 20160424

REACTIONS (6)
  - Sepsis [Fatal]
  - Disseminated intravascular coagulation [Fatal]
  - Plasma cell myeloma [Fatal]
  - Pneumonia [Fatal]
  - Urinary tract infection [Fatal]
  - Nodal arrhythmia [Fatal]
